FAERS Safety Report 5982550-X (Version None)
Quarter: 2008Q4

REPORT INFORMATION
  Report Type: 
  Country: None (occurrence: None)
  Receive Date: 20081208
  Receipt Date: 20081126
  Transmission Date: 20090506
  Serious: Yes (Other)
  Sender: FDA-Public Use
  Company Number: PHBS2008AU06458

PATIENT
  Age: 8 Month

DRUGS (1)
  1. CYCLOSPORINE [Suspect]
     Indication: LIVER TRANSPLANT
     Dosage: UNK

REACTIONS (4)
  - DIARRHOEA [None]
  - EOSINOPHILIC OESOPHAGITIS [None]
  - FOOD ALLERGY [None]
  - REGURGITATION [None]
